FAERS Safety Report 4922087-X (Version None)
Quarter: 2006Q1

REPORT INFORMATION
  Report Type: 
  Country: None (occurrence: None)
  Receive Date: 20060222
  Receipt Date: 20060222
  Transmission Date: 20060701
  Serious: Yes (Hospitalization)
  Sender: FDA-Public Use
  Company Number: None

PATIENT
  Age: 54 Year
  Sex: Male
  Weight: 71.6683 kg

DRUGS (11)
  1. GUAIFENESIN [Suspect]
     Indication: UPPER RESPIRATORY TRACT INFECTION
     Dosage: ONE DOSE
  2. RHINOCORT [Concomitant]
  3. SYNTHROID [Concomitant]
  4. LIPITOR [Concomitant]
  5. NEXIUM [Concomitant]
  6. ALLEGRA [Concomitant]
  7. M.V.I. [Concomitant]
  8. FOLIC ACID [Concomitant]
  9. TYLENOL (CAPLET) [Concomitant]
  10. BENADRYL [Concomitant]
  11. PHENERGAN [Concomitant]

REACTIONS (3)
  - DYSPHAGIA [None]
  - LOCAL SWELLING [None]
  - SWELLING FACE [None]
